FAERS Safety Report 4849957-5 (Version None)
Quarter: 2005Q4

REPORT INFORMATION
  Report Type: 
  Country: None (occurrence: None)
  Receive Date: 20051123
  Receipt Date: 20050321
  Transmission Date: 20060501
  Serious: Yes (Hospitalization, Other)
  Sender: FDA-Public Use
  Company Number: 2005025378

PATIENT
  Age: 53 Year
  Sex: Male
  Weight: 85.7298 kg

DRUGS (3)
  1. LIPITOR [Suspect]
     Indication: LIPIDS INCREASED
     Dosage: 10 MG
     Dates: start: 20040611, end: 20040802
  2. SIMVASTATIN [Suspect]
     Indication: LIPIDS INCREASED
     Dosage: 20 MG (20 MG, 1 IN 1 D)
     Dates: start: 20040517, end: 20040611
  3. CANDESARTAN CILEXETIL [Concomitant]

REACTIONS (8)
  - BLOOD PRESSURE INCREASED [None]
  - EMOTIONAL DISTRESS [None]
  - HAEMORRHOIDAL HAEMORRHAGE [None]
  - NEPHROLITHIASIS [None]
  - RHABDOMYOLYSIS [None]
  - SINUS CONGESTION [None]
  - SINUSITIS [None]
  - WEIGHT INCREASED [None]
